FAERS Safety Report 9819931 (Version 1)
Quarter: 2014Q1

REPORT INFORMATION
  Report Type: Spontaneous
  Country: US (occurrence: None)
  Receive Date: 20140113
  Receipt Date: 20140113
  Transmission Date: 20141002
  Serious: Yes (Other)
  Sender: FDA-Public Use
  Company Number: None

PATIENT
  Age: 2 Year
  Sex: Male
  Weight: 13.61 kg

DRUGS (1)
  1. MONTELUKAST [Suspect]
     Indication: MULTIPLE ALLERGIES
     Dosage: 1 PILL ONCE DAILY TAKEN BY MOUTH
     Route: 048
     Dates: start: 20131223, end: 20140110

REACTIONS (2)
  - Crying [None]
  - Abnormal behaviour [None]
